FAERS Safety Report 7480646-7 (Version None)
Quarter: 2011Q2

REPORT INFORMATION
  Report Type: 
  Country: None (occurrence: None)
  Receive Date: 20110512
  Receipt Date: 20110512
  Transmission Date: 20111010
  Serious: No
  Sender: FDA-Public Use
  Company Number: None

PATIENT
  Age: 62 Year
  Sex: Male
  Weight: 79.3795 kg

DRUGS (1)
  1. ALPRAZOLAM [Suspect]
     Indication: RETCHING
     Dosage: 2 1 PO ONLY TAKE FOR DDS APT
     Route: 048
     Dates: start: 20100412, end: 20110414

REACTIONS (2)
  - AMNESIA [None]
  - SYNCOPE [None]
